FAERS Safety Report 8633100 (Version 3)
Quarter: 2013Q2

REPORT INFORMATION
  Report Type: Report from Study
  Country: US (occurrence: US)
  Receive Date: 20120625
  Receipt Date: 20130611
  Transmission Date: 20140414
  Serious: Yes (Hospitalization)
  Sender: FDA-Public Use
  Company Number: US-ASTRAZENECA-2012SE41102

PATIENT
  Age: 27106 Day
  Sex: Male

DRUGS (8)
  1. AZD6140 [Suspect]
     Indication: CORONARY ARTERY DISEASE
     Route: 048
     Dates: start: 20120517, end: 20120605
  2. LISINOPRIL [Concomitant]
     Indication: HYPERTENSION
     Route: 048
     Dates: end: 20120612
  3. SUBLINGUAL NTG [Concomitant]
     Indication: ANGINA PECTORIS
     Route: 060
  4. CRESTOR [Concomitant]
     Indication: DYSLIPIDAEMIA
     Route: 048
     Dates: end: 20120612
  5. CRESTOR [Concomitant]
     Indication: DYSLIPIDAEMIA
     Route: 048
     Dates: start: 20130102
  6. METOPROLOL [Concomitant]
     Indication: HYPERTENSION
     Route: 048
  7. ASA [Concomitant]
     Route: 048
     Dates: end: 20130101
  8. ASA [Concomitant]
     Route: 048
     Dates: start: 20130102

REACTIONS (2)
  - Thrombocytopenia [Recovered/Resolved]
  - Gastroenteritis [Recovered/Resolved]
